FAERS Safety Report 8010730-0 (Version None)
Quarter: 2011Q4

REPORT INFORMATION
  Report Type: 
  Country: None (occurrence: None)
  Receive Date: 20111228
  Receipt Date: 20111219
  Transmission Date: 20120403
  Serious: Yes (Other)
  Sender: FDA-Public Use
  Company Number: US-JNJFOC-20111209565

PATIENT
  Sex: Female

DRUGS (1)
  1. REMICADE [Suspect]
     Indication: UVEITIS
     Route: 042

REACTIONS (1)
  - EYE OPERATION [None]
